FAERS Safety Report 15952746 (Version 1)
Quarter: 2019Q1

REPORT INFORMATION
  Report Type: Report from Study
  Country: US (occurrence: US)
  Receive Date: 20190212
  Receipt Date: 20190212
  Transmission Date: 20190417
  Serious: Yes (Hospitalization, Other)
  Sender: FDA-Public Use
  Company Number: US-GILEAD-2019-0390229

PATIENT
  Age: 53 Year
  Sex: Female

DRUGS (19)
  1. LANTUS [Concomitant]
     Active Substance: INSULIN GLARGINE
  2. RANITIDINE. [Concomitant]
     Active Substance: RANITIDINE
  3. HYPERSAL [Concomitant]
  4. SYMDEKO [Concomitant]
     Active Substance: IVACAFTOR\TEZACAFTOR
  5. METHOTREXATE. [Concomitant]
     Active Substance: METHOTREXATE
  6. URSODIOL. [Concomitant]
     Active Substance: URSODIOL
  7. HUMALOG [Concomitant]
     Active Substance: INSULIN LISPRO
  8. PROAIR [FLUTICASONE PROPIONATE] [Concomitant]
  9. HYDROXYCHLOROQUINE [Concomitant]
     Active Substance: HYDROXYCHLOROQUINE
  10. TRAZODONE [Concomitant]
     Active Substance: TRAZODONE HYDROCHLORIDE
  11. PULMOZYME [Concomitant]
     Active Substance: DORNASE ALFA
  12. FLUCONAZOLE. [Concomitant]
     Active Substance: FLUCONAZOLE
  13. AZTREONAM LYSINE [Suspect]
     Active Substance: AZTREONAM LYSINE
     Indication: CYSTIC FIBROSIS
     Dosage: 1 DF, TID, QOM
     Route: 055
     Dates: start: 20131024
  14. VALACYCLOVIR [Concomitant]
     Active Substance: VALACYCLOVIR HYDROCHLORIDE
  15. PAROXETINE. [Concomitant]
     Active Substance: PAROXETINE
  16. MIRTAZAPINE. [Concomitant]
     Active Substance: MIRTAZAPINE
  17. DRONABINOL. [Concomitant]
     Active Substance: DRONABINOL
  18. FOLIC ACID. [Concomitant]
     Active Substance: FOLIC ACID
  19. ZENPEP [Concomitant]
     Active Substance: PANCRELIPASE AMYLASE\PANCRELIPASE LIPASE\PANCRELIPASE PROTEASE

REACTIONS (1)
  - Lung infection [Unknown]

NARRATIVE: CASE EVENT DATE: 20190127
